FAERS Safety Report 6749654-5 (Version None)
Quarter: 2010Q2

REPORT INFORMATION
  Report Type: 
  Country: None (occurrence: None)
  Receive Date: 20100601
  Receipt Date: 20100521
  Transmission Date: 20101027
  Serious: Yes (Hospitalization)
  Sender: FDA-Public Use
  Company Number: B0656575A

PATIENT
  Sex: Male

DRUGS (12)
  1. AUGMENTIN '125' [Suspect]
     Dosage: 3UNIT PER DAY
     Route: 042
     Dates: start: 20080423, end: 20080424
  2. IODE [Suspect]
     Dosage: 1UNIT PER DAY
     Route: 042
     Dates: start: 20080423, end: 20080423
  3. NETROMYCIN [Suspect]
     Dosage: 200MG SEE DOSAGE TEXT
     Route: 042
     Dates: start: 20080423, end: 20080424
  4. MICARDIS [Suspect]
     Dosage: 80MG PER DAY
     Route: 048
     Dates: end: 20080423
  5. LASIX [Suspect]
     Dosage: 40MG PER DAY
     Route: 048
     Dates: end: 20080425
  6. FONZYLANE [Concomitant]
     Dosage: 1BAG TWICE PER DAY
     Route: 042
     Dates: start: 20080423, end: 20080424
  7. DAFALGAN [Concomitant]
     Indication: PAIN
     Dosage: 1G TWICE PER DAY
     Route: 048
     Dates: start: 20080423, end: 20080425
  8. KARDEGIC [Concomitant]
     Dosage: 75MG PER DAY
     Route: 048
     Dates: start: 20080424, end: 20080424
  9. FLECAINIDE ACETATE [Concomitant]
     Indication: ARRHYTHMIA
     Dosage: 100MG TWICE PER DAY
     Route: 048
  10. KALEORID LP [Concomitant]
     Dosage: 600MG PER DAY
     Route: 048
     Dates: end: 20080425
  11. PREVISCAN [Concomitant]
     Dosage: 20MG PER DAY
     Route: 048
     Dates: end: 20080423
  12. FONZYLANE [Concomitant]
     Dosage: 300MG TWICE PER DAY
     Route: 048
     Dates: end: 20080423

REACTIONS (2)
  - INFLAMMATION [None]
  - RENAL FAILURE ACUTE [None]
